FAERS Safety Report 17884043 (Version 1)
Quarter: 2020Q2

REPORT INFORMATION
  Report Type: Report from Study
  Country: PL (occurrence: PL)
  Receive Date: 20200611
  Receipt Date: 20200611
  Transmission Date: 20200714
  Serious: Yes (Hospitalization)
  Sender: FDA-Public Use
  Company Number: PL-MYLANLABS-2020M1054520

PATIENT
  Sex: Female

DRUGS (7)
  1. MAGNESIUM SULPHATE                 /07507001/ [Suspect]
     Active Substance: MAGNESIUM SULFATE
     Indication: INTESTINAL OBSTRUCTION
     Route: 065
  2. MEBEVERINE [Suspect]
     Active Substance: MEBEVERINE
     Indication: INTESTINAL OBSTRUCTION
     Route: 065
  3. DEXAMETHASONE. [Suspect]
     Active Substance: DEXAMETHASONE
     Indication: INTESTINAL OBSTRUCTION
     Route: 065
  4. BUSCOLYSIN [Suspect]
     Active Substance: BUTYLSCOPOLAMINE
     Indication: INTESTINAL OBSTRUCTION
     Route: 065
  5. OMEPRAZOLE. [Suspect]
     Active Substance: OMEPRAZOLE
     Indication: INTESTINAL OBSTRUCTION
     Route: 065
  6. RANITIDINE. [Suspect]
     Active Substance: RANITIDINE
     Indication: INTESTINAL OBSTRUCTION
     Route: 065
  7. SIMETHICONE (DIMETHICONE) [Suspect]
     Active Substance: DIMETHICONE
     Indication: INTESTINAL OBSTRUCTION
     Route: 065

REACTIONS (1)
  - Drug ineffective [Unknown]
